FAERS Safety Report 8837275 (Version 1)
Quarter: 2012Q4

REPORT INFORMATION
  Report Type: Spontaneous
  Country: US (occurrence: None)
  Receive Date: 20121011
  Receipt Date: 20121011
  Transmission Date: 20130627
  Serious: No
  Sender: FDA-Public Use
  Company Number: None

PATIENT
  Age: 68 Year
  Sex: Female
  Weight: 91.17 kg

DRUGS (5)
  1. WELCHOL [Suspect]
     Indication: HIGH CHOLESTEROL
     Dosage: 3 tablets twice daily po
     Route: 048
     Dates: start: 20121002, end: 20121005
  2. PLAVIX [Concomitant]
  3. DILTIAZEM [Concomitant]
  4. VITAMIN D [Concomitant]
  5. HYOSCYAMINE SULFATE [Concomitant]

REACTIONS (6)
  - Arthralgia [None]
  - Arthralgia [None]
  - Muscle tightness [None]
  - Gait disturbance [None]
  - Swelling [None]
  - Arthralgia [None]
